FAERS Safety Report 21097560 (Version 1)
Quarter: 2022Q3

REPORT INFORMATION
  Report Type: Report from Study
  Country: TW (occurrence: TW)
  Receive Date: 20220719
  Receipt Date: 20220719
  Transmission Date: 20221026
  Serious: Yes (Hospitalization, Other)
  Sender: FDA-Public Use
  Company Number: TW-ONO-2022TW014160

PATIENT
  Age: 30 Year
  Sex: Female
  Weight: 70 kg

DRUGS (10)
  1. IPILIMUMAB [Suspect]
     Active Substance: IPILIMUMAB
     Indication: Gastric cancer
     Route: 065
     Dates: start: 20220509, end: 20220509
  2. TS-1 [Suspect]
     Active Substance: GIMERACIL\OTERACIL\TEGAFUR
     Indication: Gastric cancer
     Dosage: 60 MG/M2
     Route: 048
     Dates: start: 20220509, end: 20220522
  3. TS-1 [Suspect]
     Active Substance: GIMERACIL\OTERACIL\TEGAFUR
     Dosage: 60 MG/M2
     Route: 048
     Dates: start: 20220510, end: 20220523
  4. OXALIPLATIN [Suspect]
     Active Substance: OXALIPLATIN
     Indication: Gastric cancer
     Dosage: 234 MG/M2
     Route: 065
     Dates: start: 20220509, end: 20220509
  5. EMEND [Concomitant]
     Active Substance: APREPITANT
     Indication: Product used for unknown indication
     Dosage: 125 UNK
     Route: 048
     Dates: start: 20220509, end: 20220509
  6. DIPHENHYDRAMINE [Concomitant]
     Active Substance: DIPHENHYDRAMINE
     Indication: Product used for unknown indication
     Dosage: 30 UNK
     Route: 065
     Dates: start: 20220509, end: 20220509
  7. PRIMPERAN [Concomitant]
     Active Substance: METOCLOPRAMIDE HYDROCHLORIDE
     Indication: Product used for unknown indication
     Dosage: 10 UNK
     Route: 065
     Dates: start: 20220509, end: 20220509
  8. MOSAPRIDE [Concomitant]
     Active Substance: MOSAPRIDE
     Indication: Gastric cancer
     Dosage: 3 DF
     Route: 065
  9. PALONOSETRON [Concomitant]
     Active Substance: PALONOSETRON
     Indication: Product used for unknown indication
     Dosage: 0.25 UNK
     Route: 065
     Dates: start: 20220509, end: 20220509
  10. METHASONE [DEXAMETHASONE] [Concomitant]

REACTIONS (2)
  - Stevens-Johnson syndrome [Recovered/Resolved]
  - Pyrexia [Recovering/Resolving]

NARRATIVE: CASE EVENT DATE: 20220518
